FAERS Safety Report 6960649-9 (Version None)
Quarter: 2010Q3

REPORT INFORMATION
  Report Type: 
  Country: None (occurrence: None)
  Receive Date: 20100901
  Receipt Date: 20100820
  Transmission Date: 20110219
  Serious: Yes (Other)
  Sender: FDA-Public Use
  Company Number: US-PFIZER INC-2010106171

PATIENT
  Sex: Female
  Weight: 64.853 kg

DRUGS (9)
  1. CHANTIX [Suspect]
     Indication: SMOKING CESSATION THERAPY
     Dosage: 0.5 MG, DAILY
     Route: 048
     Dates: start: 20100817
  2. DEPAKOTE [Concomitant]
     Indication: AFFECTIVE DISORDER
     Dosage: UNK
  3. CLONAZEPAM [Concomitant]
     Indication: AFFECTIVE DISORDER
     Dosage: UNK
  4. DARVOCET [Concomitant]
     Indication: PAIN
     Dosage: 100 MG, AS NEEDED
  5. DARVOCET [Concomitant]
     Indication: BACK INJURY
  6. DARVOCET [Concomitant]
     Indication: MUSCLE SPASMS
  7. SOMA [Concomitant]
     Indication: PAIN
     Dosage: 350 MG, AS NEEDED
  8. SOMA [Concomitant]
     Indication: BACK INJURY
  9. SOMA [Concomitant]
     Indication: MUSCLE SPASMS

REACTIONS (6)
  - ASTHENIA [None]
  - CONVULSION [None]
  - GAIT DISTURBANCE [None]
  - HEADACHE [None]
  - LUNG NEOPLASM MALIGNANT [None]
  - STRESS [None]
